FAERS Safety Report 25104841 (Version 2)
Quarter: 2025Q2

REPORT INFORMATION
  Report Type: Spontaneous
  Country: US (occurrence: US)
  Receive Date: 20250321
  Receipt Date: 20250618
  Transmission Date: 20250717
  Serious: No
  Sender: FERRING
  Company Number: US-FERRINGPH-2025FE00514

PATIENT
  Age: 71 Year
  Sex: Female
  Weight: 54.875 kg

DRUGS (11)
  1. REBYOTA [Suspect]
     Active Substance: DONOR HUMAN STOOL
     Indication: Clostridium difficile infection
     Dosage: 150 ML, ONCE/SINGLE
     Route: 054
     Dates: start: 20250129, end: 20250129
  2. SACCHAROMYCES CEREVISIAE [Concomitant]
     Active Substance: SACCHAROMYCES CEREVISIAE
     Indication: Probiotic therapy
     Dosage: 250 MG, 2 TIMES DAILY
     Route: 065
     Dates: start: 20241201
  3. EDARBI [Concomitant]
     Active Substance: AZILSARTAN KAMEDOXOMIL
     Indication: Hypertension
     Dosage: 40 MG, DAILY
     Route: 065
     Dates: start: 20241201
  4. REPATHA [Concomitant]
     Active Substance: EVOLOCUMAB
     Indication: Blood cholesterol increased
     Dosage: UNK, EVERY 2ND WEEK
     Route: 058
     Dates: start: 20241118
  5. ALPRAZOLAM [Concomitant]
     Active Substance: ALPRAZOLAM
     Indication: Anxiety
     Dosage: 0.5 MG, DAILY
     Route: 065
     Dates: start: 20240223
  6. METOPROLOL [Concomitant]
     Active Substance: METOPROLOL
     Indication: Hypertension
     Dosage: 25 MG, DAILY
     Route: 065
     Dates: start: 20241201
  7. BUPROPION [Concomitant]
     Active Substance: BUPROPION
     Indication: Anxiety
     Dosage: 150 MG, DAILY
     Route: 065
     Dates: start: 20241013
  8. DESVENLAFAXINE [Concomitant]
     Active Substance: DESVENLAFAXINE
     Indication: Depression
     Dosage: 100 MG, DAILY
     Route: 065
     Dates: start: 20241209
  9. ZINPLAVA [Concomitant]
     Active Substance: BEZLOTOXUMAB
     Indication: Clostridium difficile infection
     Dosage: 580 MG, ONCE/SINGLE
     Route: 042
     Dates: start: 20241010, end: 20241010
  10. DIFICID [Concomitant]
     Active Substance: FIDAXOMICIN
     Indication: Clostridium difficile infection
     Dosage: 200 MG, 2 TIMES DAILY
     Route: 065
     Dates: start: 20241218, end: 20250101
  11. VANCOMYCIN [Concomitant]
     Active Substance: VANCOMYCIN
     Indication: Clostridium difficile infection
     Dosage: 125 MG, 4 TIMES DAILY
     Route: 065
     Dates: start: 20250102, end: 20250126

REACTIONS (4)
  - Clostridium difficile infection [Recovered/Resolved]
  - Mucous stools [Not Recovered/Not Resolved]
  - Flatulence [Not Recovered/Not Resolved]
  - Abdominal distension [Not Recovered/Not Resolved]

NARRATIVE: CASE EVENT DATE: 20250129
